FAERS Safety Report 6412921-9 (Version None)
Quarter: 2009Q4

REPORT INFORMATION
  Report Type: 
  Country: None (occurrence: None)
  Receive Date: 20091023
  Receipt Date: 20091013
  Transmission Date: 20100525
  Serious: Yes (Death)
  Sender: FDA-Public Use
  Company Number: US-JNJCH-2009006337

PATIENT
  Age: 19 Year
  Sex: Male

DRUGS (3)
  1. BENADRYL [Suspect]
     Indication: DRUG USE FOR UNKNOWN INDICATION
     Dosage: TEXT:UNSPECIFIED
     Route: 065
  2. DEXTROMETHORPHAN HYDROBROMIDE [Suspect]
     Indication: OFF LABEL USE
     Dosage: TEXT:UNSPECIFIED
     Route: 065
  3. COUGH AND COLD PREPARATIONS [Suspect]
     Indication: DRUG USE FOR UNKNOWN INDICATION
     Dosage: TEXT:UNSPECIFIED
     Route: 065

REACTIONS (1)
  - INTENTIONAL DRUG MISUSE [None]
